FAERS Safety Report 4729856-X (Version None)
Quarter: 2005Q3

REPORT INFORMATION
  Report Type: 
  Country: None (occurrence: None)
  Receive Date: 20050801
  Receipt Date: 20050628
  Transmission Date: 20060218
  Serious: Yes (Disabling)
  Sender: FDA-Public Use
  Company Number: US-MERCK-0506USA03888

PATIENT
  Age: 62 Year
  Sex: Male
  Weight: 76 kg

DRUGS (6)
  1. VYTORIN [Suspect]
     Indication: BLOOD CHOLESTEROL INCREASED
     Route: 048
     Dates: start: 20050101, end: 20050501
  2. ZOCOR [Suspect]
     Indication: BLOOD CHOLESTEROL INCREASED
     Route: 048
     Dates: start: 20040101, end: 20040101
  3. KLONOPIN [Concomitant]
     Indication: SLEEP DISORDER
     Route: 065
  4. ASPIRIN [Concomitant]
     Route: 065
  5. GLUCOSAMINE [Concomitant]
     Indication: ARTHRALGIA
     Route: 065
  6. CHONDROITIN [Concomitant]
     Indication: ARTHRALGIA
     Route: 065

REACTIONS (4)
  - ARTHROPATHY [None]
  - ASTHENIA [None]
  - BACK PAIN [None]
  - PAIN IN EXTREMITY [None]
